FAERS Safety Report 21479507 (Version 1)
Quarter: 2022Q4

REPORT INFORMATION
  Report Type: Spontaneous
  Country: US (occurrence: US)
  Receive Date: 20221019
  Receipt Date: 20221019
  Transmission Date: 20230113
  Serious: Yes (Hospitalization)
  Sender: FDA-Public Use
  Company Number: US-AMGEN-USASP2022175801

PATIENT
  Age: 56 Year
  Sex: Female

DRUGS (1)
  1. BLINCYTO [Suspect]
     Active Substance: BLINATUMOMAB
     Indication: Acute myeloid leukaemia
     Dosage: UNK
     Route: 040

REACTIONS (2)
  - Unevaluable event [Unknown]
  - Biopsy [Unknown]

NARRATIVE: CASE EVENT DATE: 20220929
